FAERS Safety Report 10011919 (Version 1)
Quarter: 2014Q1

REPORT INFORMATION
  Report Type: Spontaneous
  Country: US (occurrence: US)
  Receive Date: 20140314
  Receipt Date: 20140314
  Transmission Date: 20141002
  Serious: Yes (Hospitalization)
  Sender: FDA-Public Use
  Company Number: PHEH2014US005071

PATIENT
  Age: 61 Year
  Sex: Female

DRUGS (9)
  1. CLOZARIL [Suspect]
     Dosage: 100 MG, UNK
  2. CLOZARIL [Suspect]
     Dosage: 175 MG, UNK
  3. CLOZARIL [Suspect]
     Dosage: 100 MG, UNK
  4. ATIVAN [Concomitant]
     Dosage: 0.5 MG, TID
  5. NEURONTIN [Concomitant]
     Dosage: 400 MG, TID
  6. PAROXETINE [Concomitant]
     Dosage: 40 MG, UNK
  7. COGENTIN [Concomitant]
     Dosage: 1 MG, BID
  8. COGENTIN [Concomitant]
     Dosage: DOSE REDUCED
  9. MIRTAZAPINE [Concomitant]
     Dosage: 7.5 MG, UNK

REACTIONS (4)
  - Fall [Recovered/Resolved]
  - Confusional state [Recovered/Resolved]
  - Orthostatic hypotension [Recovered/Resolved]
  - Dehydration [Recovered/Resolved]
